FAERS Safety Report 13414863 (Version 1)
Quarter: 2017Q2

REPORT INFORMATION
  Report Type: Spontaneous
  Country: US (occurrence: US)
  Receive Date: 20170407
  Receipt Date: 20170407
  Transmission Date: 20170830
  Serious: No
  Sender: FDA-Public Use
  Company Number: None

PATIENT
  Sex: Male

DRUGS (1)
  1. LEDIPASVIR/SOFOSUVIR [Suspect]
     Active Substance: LEDIPASVIR\SOFOSBUVIR
     Dates: start: 20160626, end: 20160830

REACTIONS (1)
  - Renal failure [None]

NARRATIVE: CASE EVENT DATE: 20170314
